FAERS Safety Report 13558308 (Version 1)
Quarter: 2017Q2

REPORT INFORMATION
  Report Type: Spontaneous
  Country: FR (occurrence: FR)
  Receive Date: 20170517
  Receipt Date: 20170517
  Transmission Date: 20170830
  Serious: Yes (Other)
  Sender: FDA-Public Use
  Company Number: PHHY2017FR038066

PATIENT
  Sex: Female

DRUGS (4)
  1. AVLOCARDYL [Concomitant]
     Active Substance: PROPRANOLOL HYDROCHLORIDE
     Indication: TACHYCARDIA
     Dosage: 5 MG, BID
     Route: 048
     Dates: end: 20170306
  2. ALPRAZOLAM SANDOZ [Suspect]
     Active Substance: ALPRAZOLAM
     Indication: ANXIETY
     Dosage: 1-2 DF, QD
     Route: 048
  3. ALPRAZOLAM SANDOZ [Suspect]
     Active Substance: ALPRAZOLAM
     Dosage: 2 DF, QD
     Route: 048
  4. ALPRAZOLAM SANDOZ [Suspect]
     Active Substance: ALPRAZOLAM
     Dosage: 1 DF, QD
     Route: 048
     Dates: start: 20170306

REACTIONS (5)
  - Pulmonary hypertension [Not Recovered/Not Resolved]
  - Dyspnoea [Not Recovered/Not Resolved]
  - Tricuspid valve incompetence [Not Recovered/Not Resolved]
  - Oedema peripheral [Not Recovered/Not Resolved]
  - Pulmonary embolism [Not Recovered/Not Resolved]
